FAERS Safety Report 10620655 (Version 2)
Quarter: 2017Q3

REPORT INFORMATION
  Report Type: Report from Study
  Country: US (occurrence: US)
  Receive Date: 20141202
  Receipt Date: 20170711
  Transmission Date: 20171127
  Serious: Yes (Life-Threatening)
  Sender: FDA-Public Use
  Company Number: US-ACTELION-A-US2014-108781

PATIENT
  Age: 66 Year
  Sex: Female

DRUGS (2)
  1. TRACLEER [Suspect]
     Active Substance: BOSENTAN
     Indication: PULMONARY ARTERIAL HYPERTENSION
     Dosage: 125 MG, UNK
     Route: 048
     Dates: start: 20150921, end: 20170627
  2. ASPIRIN. [Concomitant]
     Active Substance: ASPIRIN

REACTIONS (5)
  - Skin infection [Recovering/Resolving]
  - Haematocrit decreased [Recovered/Resolved]
  - Subcutaneous abscess [Recovering/Resolving]
  - Cardiac failure congestive [Recovering/Resolving]
  - Swelling [Recovering/Resolving]
